FAERS Safety Report 5952184-1 (Version None)
Quarter: 2008Q4

REPORT INFORMATION
  Report Type: 
  Country: None (occurrence: None)
  Receive Date: 20081113
  Receipt Date: 20080827
  Transmission Date: 20090506
  Serious: No
  Sender: FDA-Public Use
  Company Number: A0744691A

PATIENT
  Age: 53 Year
  Sex: Female

DRUGS (18)
  1. COREG [Suspect]
     Indication: LEFT VENTRICULAR DYSFUNCTION
     Dosage: 3.125MG TWICE PER DAY
     Route: 048
     Dates: start: 20070101, end: 20080527
  2. COREG CR [Suspect]
     Indication: LEFT VENTRICULAR DYSFUNCTION
     Dosage: 20MG PER DAY
     Route: 048
     Dates: start: 20080527
  3. POTASSIUM EFFERVESCENT [Concomitant]
  4. BECLOMETHASONE NASAL SPRAY [Concomitant]
  5. SIMVASTATIN [Concomitant]
  6. WELLBUTRIN [Concomitant]
  7. LEXAPRO [Concomitant]
  8. NORVIR [Concomitant]
  9. LEXIVA [Concomitant]
  10. PREVACID [Concomitant]
  11. TRUVADA [Concomitant]
  12. HYDROCHLOROTHIAZIDE [Concomitant]
  13. COZAAR [Concomitant]
  14. FERROUS SULFATE [Concomitant]
  15. CALCIUM PLUS D [Concomitant]
  16. FISH OIL [Concomitant]
  17. ZYRTEC [Concomitant]
  18. FOLIC ACID [Concomitant]

REACTIONS (8)
  - BALANCE DISORDER [None]
  - BLOOD PRESSURE DECREASED [None]
  - DIZZINESS [None]
  - DRUG INEFFECTIVE [None]
  - GAIT DISTURBANCE [None]
  - HEADACHE [None]
  - JOINT SWELLING [None]
  - PRODUCT QUALITY ISSUE [None]
